FAERS Safety Report 4743816-4 (Version None)
Quarter: 2005Q3

REPORT INFORMATION
  Report Type: 
  Country: None (occurrence: None)
  Receive Date: 20050812
  Receipt Date: 20050704
  Transmission Date: 20060218
  Serious: Yes (Life-Threatening)
  Sender: FDA-Public Use
  Company Number: JP-BRISTOL-MYERS SQUIBB COMPANY-13026315

PATIENT
  Age: 65 Year
  Sex: Female

DRUGS (10)
  1. TAXOL [Suspect]
     Indication: OVARIAN CANCER
     Route: 041
     Dates: start: 20050617, end: 20050624
  2. RANDA [Suspect]
     Indication: OVARIAN CANCER
     Route: 041
     Dates: start: 20050617, end: 20050617
  3. VENA [Concomitant]
     Route: 048
     Dates: start: 20050617, end: 20050624
  4. ZANTAC [Concomitant]
     Route: 042
     Dates: start: 20040617, end: 20050624
  5. DECADRON [Concomitant]
     Route: 042
     Dates: start: 20050617, end: 20050624
  6. KYTRIL [Concomitant]
     Route: 041
     Dates: start: 20050617, end: 20050624
  7. RINDERON [Concomitant]
     Route: 041
     Dates: start: 20050617, end: 20050624
  8. HYDROCORTONE [Concomitant]
     Route: 041
     Dates: start: 20040617, end: 20040617
  9. LASIX [Concomitant]
     Route: 042
     Dates: start: 20050617, end: 20050617
  10. NOLVADEX [Concomitant]

REACTIONS (4)
  - CARDIAC ARREST [None]
  - CARDIAC FAILURE [None]
  - RHABDOMYOLYSIS [None]
  - SHOCK [None]
